FAERS Safety Report 7775175-7 (Version None)
Quarter: 2011Q3

REPORT INFORMATION
  Report Type: 
  Country: None (occurrence: None)
  Receive Date: 20110923
  Receipt Date: 20110914
  Transmission Date: 20111222
  Serious: Yes (Other)
  Sender: FDA-Public Use
  Company Number: US-JNJFOC-20110906415

PATIENT
  Sex: Female
  Weight: 72.58 kg

DRUGS (2)
  1. ELMIRON [Suspect]
     Indication: CYSTITIS INTERSTITIAL
     Route: 048
     Dates: start: 20110901, end: 20110901
  2. ELMIRON [Suspect]
     Route: 048

REACTIONS (7)
  - BLOOD CHOLESTEROL INCREASED [None]
  - FATIGUE [None]
  - CYSTITIS INTERSTITIAL [None]
  - HYPERTENSION [None]
  - FEELING ABNORMAL [None]
  - SLEEP APNOEA SYNDROME [None]
  - ACTIVITIES OF DAILY LIVING IMPAIRED [None]
